FAERS Safety Report 5349928-9 (Version None)
Quarter: 2007Q2

REPORT INFORMATION
  Report Type: 
  Country: None (occurrence: None)
  Receive Date: 20070607
  Receipt Date: 20070529
  Transmission Date: 20071010
  Serious: Yes (Hospitalization, Other)
  Sender: FDA-Public Use
  Company Number: US-PFIZER INC-2007043667

PATIENT
  Age: 43 Year
  Sex: Female

DRUGS (4)
  1. LITHIUM CARBONATE [Suspect]
     Indication: BIPOLAR DISORDER
  2. NAPROXEN SODIUM [Concomitant]
  3. AMITRIPTYLINE HCL [Concomitant]
  4. MIRTAZAPINE [Concomitant]

REACTIONS (14)
  - ANTIPSYCHOTIC DRUG LEVEL BELOW THERAPEUTIC [None]
  - BLOOD BICARBONATE INCREASED [None]
  - BLOOD CREATININE INCREASED [None]
  - BRADYCARDIA [None]
  - ELECTROCARDIOGRAM QRS COMPLEX SHORTENED [None]
  - ELECTROCARDIOGRAM T WAVE AMPLITUDE DECREASED [None]
  - HAEMODIALYSIS [None]
  - HYPOCHLORAEMIA [None]
  - HYPOKALAEMIA [None]
  - HYPOTENSION [None]
  - HYPOTHERMIA [None]
  - METABOLIC ALKALOSIS [None]
  - SINOATRIAL BLOCK [None]
  - THERAPEUTIC AGENT TOXICITY [None]
